FAERS Safety Report 23898242 (Version 1)
Quarter: 2024Q2

REPORT INFORMATION
  Report Type: Spontaneous
  Country: ZA (occurrence: None)
  Receive Date: 20240524
  Receipt Date: 20240524
  Transmission Date: 20240716
  Serious: Yes (Other)
  Sender: FDA-Public Use
  Company Number: 2024A118672

PATIENT
  Age: 66 Year
  Sex: Male

DRUGS (6)
  1. BUDESONIDE\FORMOTEROL [Suspect]
     Active Substance: BUDESONIDE\FORMOTEROL
     Indication: Asthma
     Dosage: 120 UG/INHAL UNKNOWN FREQUENCY UNKNOWN
     Route: 055
  2. VALSARTAN [Concomitant]
     Active Substance: VALSARTAN
     Indication: Hypertension
  3. OMEPRAZOLE [Concomitant]
     Active Substance: DONEPEZIL HYDROCHLORIDE\OMEPRAZOLE\OMEPRAZOLE MAGNESIUM
     Indication: Gastrooesophageal reflux disease
  4. TOPRAZ [Concomitant]
     Indication: Asthma
  5. ASTHAVENT ECOHALER 200DOSE 100 MCG [Concomitant]
     Indication: Bronchospasm
     Dosage: 200UG/INHAL
     Route: 055
  6. UROMAX [Concomitant]
     Indication: Prostatomegaly
     Route: 048

REACTIONS (1)
  - Illness [Unknown]
